FAERS Safety Report 9314296 (Version 2)
Quarter: 2014Q1

REPORT INFORMATION
  Report Type: Spontaneous
  Country: AU (occurrence: AU)
  Receive Date: 20130529
  Receipt Date: 20140204
  Transmission Date: 20141002
  Serious: Yes (Other)
  Sender: FDA-Public Use
  Company Number: PHHY2013AU051486

PATIENT
  Age: 41 Year
  Sex: Male

DRUGS (5)
  1. QUETIAPINE [Suspect]
     Dosage: 18 G, UNK
  2. FLUOXETINE [Suspect]
     Dosage: 240 MG, UNK
  3. OXAZEPAM [Suspect]
     Dosage: 375 MG, UNK
  4. CARBAMAZEPINE [Suspect]
     Dosage: 10 G, UNK
  5. VALPROIC ACID [Suspect]
     Dosage: 35 MG, UNK

REACTIONS (6)
  - Shock [Unknown]
  - Toxicity to various agents [Unknown]
  - Metabolic acidosis [Recovering/Resolving]
  - Coma [Unknown]
  - Hypotension [Not Recovered/Not Resolved]
  - Overdose [Unknown]
